FAERS Safety Report 13732460 (Version 2)
Quarter: 2019Q1

REPORT INFORMATION
  Report Type: Report from Study
  Country: US (occurrence: US)
  Receive Date: 20170707
  Receipt Date: 20190128
  Transmission Date: 20190417
  Serious: No
  Sender: FDA-Public Use
  Company Number: US-SA-2017SA115955

PATIENT
  Age: 38 Year
  Sex: Female

DRUGS (3)
  1. DUPILUMAB [Suspect]
     Active Substance: DUPILUMAB
     Dosage: 300 MG,QOW
     Route: 058
     Dates: start: 20170620
  2. DUPILUMAB [Suspect]
     Active Substance: DUPILUMAB
     Dosage: 300 MG/2ML , QOW
     Route: 058
     Dates: start: 20180406
  3. DUPILUMAB [Suspect]
     Active Substance: DUPILUMAB
     Indication: DERMATITIS ATOPIC
     Dosage: 600 MG,1X
     Route: 058
     Dates: start: 20170613, end: 20170613

REACTIONS (10)
  - Weight decreased [Unknown]
  - Product use issue [Unknown]
  - Ligament sprain [Unknown]
  - Condition aggravated [Unknown]
  - Joint swelling [Unknown]
  - Arthritis [Unknown]
  - Arthralgia [Unknown]
  - Oedema peripheral [Unknown]
  - Gait disturbance [Unknown]
  - Feeling hot [Unknown]

NARRATIVE: CASE EVENT DATE: 201706
